FAERS Safety Report 12518441 (Version 3)
Quarter: 2016Q3

REPORT INFORMATION
  Report Type: Spontaneous
  Country: AU (occurrence: AU)
  Receive Date: 20160630
  Receipt Date: 20160701
  Transmission Date: 20161109
  Serious: Yes (Other)
  Sender: FDA-Public Use
  Company Number: AU-SAOL THERAPEUTICS-2016SAO00009

PATIENT
  Age: 66 Year
  Sex: Male

DRUGS (5)
  1. LIORESAL [Suspect]
     Active Substance: BACLOFEN
     Dosage: 159.76 ?G, UNK
     Route: 037
     Dates: end: 20160613
  2. LIORESAL [Suspect]
     Active Substance: BACLOFEN
     Dosage: 219.92 ?G, UNK
     Route: 037
     Dates: start: 20160613
  3. MORPHINE [Suspect]
     Active Substance: MORPHINE
     Dosage: 116.21 ?G, UNK
     Route: 037
     Dates: end: 20160613
  4. MORPHINE [Suspect]
     Active Substance: MORPHINE
     Dosage: 159.95 UNK, UNK
     Route: 037
     Dates: start: 20160613
  5. SALINE [Suspect]
     Active Substance: SODIUM CHLORIDE
     Dosage: 0.174 MG, UNK

REACTIONS (2)
  - Device failure [Unknown]
  - Fall [Unknown]

NARRATIVE: CASE EVENT DATE: 201606
